FAERS Safety Report 8354405-7 (Version None)
Quarter: 2012Q2

REPORT INFORMATION
  Report Type: 
  Country: None (occurrence: None)
  Receive Date: 20120511
  Receipt Date: 20120430
  Transmission Date: 20120825
  Serious: Yes (Hospitalization, Other)
  Sender: FDA-Public Use
  Company Number: US-JNJFOC-20120501787

PATIENT
  Sex: Female
  Weight: 71.67 kg

DRUGS (1)
  1. REMICADE [Suspect]
     Indication: RHEUMATOID ARTHRITIS
     Route: 042
     Dates: start: 20110801

REACTIONS (8)
  - OEDEMA PERIPHERAL [None]
  - WHEEZING [None]
  - ARTHROPATHY [None]
  - CELLULITIS [None]
  - FEELING HOT [None]
  - SKIN EXFOLIATION [None]
  - WEIGHT BEARING DIFFICULTY [None]
  - DYSPNOEA [None]
